FAERS Safety Report 19312265 (Version 2)
Quarter: 2022Q3

REPORT INFORMATION
  Report Type: Spontaneous
  Country: CN (occurrence: None)
  Receive Date: 20210527
  Receipt Date: 20220710
  Transmission Date: 20221027
  Serious: Yes (Other)
  Sender: FDA-Public Use
  Company Number: CN-ROCHE-2834285

PATIENT
  Age: 74 Year
  Sex: Female

DRUGS (27)
  1. RITUXIMAB [Suspect]
     Active Substance: RITUXIMAB
     Indication: Non-Hodgkin^s lymphoma
     Dosage: DAY0,BR, R-CHOP, ON 08/APR/2009, 29/APR/2009, 25/MAY/2009, 19/JUN/2009
     Route: 042
  2. RITUXIMAB [Suspect]
     Active Substance: RITUXIMAB
     Indication: B-cell small lymphocytic lymphoma
     Dosage: DAY0,BR
     Route: 042
     Dates: start: 20180403
  3. RITUXIMAB [Suspect]
     Active Substance: RITUXIMAB
     Dosage: RITUXIMAB + CHLORAMBUCIL TABLETS,ON 24 APR 2018,18 MAY 2018,12 JUN 2018
     Route: 042
  4. RITUXIMAB [Suspect]
     Active Substance: RITUXIMAB
     Dosage: DAY0,R2,ON 24 OCT 2019,26 NOV 2019,26 DEC 2019,07 FEB 2020,Q4W
     Route: 042
  5. RITUXIMAB [Suspect]
     Active Substance: RITUXIMAB
     Dosage: DAY0,BR,ON 23 MAR 2020,22 APR 2020,20 MAY 2020,17 JUN 2020,Q4W
     Route: 042
  6. RITUXIMAB [Suspect]
     Active Substance: RITUXIMAB
     Dosage: DAY0,R-CVP,ON 13 OCT 2020,10 NOV 2020,09 DEC 2020,05 JAN 2021,02 FEB 2021
     Route: 042
  7. XELODA [Suspect]
     Active Substance: CAPECITABINE
     Indication: Colon cancer
     Dosage: XELOX
     Route: 048
     Dates: start: 20110527
  8. XELODA [Suspect]
     Active Substance: CAPECITABINE
     Indication: Adenocarcinoma
     Dosage: XELOX,DAY1 TO DAY14,Q3W
     Route: 065
     Dates: start: 20110617
  9. OBINUTUZUMAB [Suspect]
     Active Substance: OBINUTUZUMAB
     Indication: Non-Hodgkin^s lymphoma
     Route: 042
     Dates: start: 20220125, end: 20220328
  10. OBINUTUZUMAB [Suspect]
     Active Substance: OBINUTUZUMAB
     Indication: Lymphocytic lymphoma
     Route: 042
     Dates: start: 20220525, end: 20220621
  11. CYCLOPHOSPHAMIDE [Concomitant]
     Active Substance: CYCLOPHOSPHAMIDE
     Indication: Non-Hodgkin^s lymphoma
     Dosage: CHOP, ON 13 JAN 2009,02 FEB 2009,25 FEB 2009,17 MAR 2009
  12. CYCLOPHOSPHAMIDE [Concomitant]
     Active Substance: CYCLOPHOSPHAMIDE
     Indication: B-cell small lymphocytic lymphoma
     Dosage: R-CHOP, ON 08 APR 2009,29 APR 2009,25 MAY 2009,19 JUN 2009
  13. CYCLOPHOSPHAMIDE [Concomitant]
     Active Substance: CYCLOPHOSPHAMIDE
     Dosage: DAY1,R-CVP,ON 13 OCT 2020,10 NOV 2020,09 DEC 2020,05 JAN 2021,02 FEB 2021
  14. DOXORUBICIN [Concomitant]
     Active Substance: DOXORUBICIN
     Indication: Non-Hodgkin^s lymphoma
     Dosage: CHOP,ON 13 JAN 2009,02 FEB 2009,25 FEB 2009,17 MAR 2009, R-CHOP, ON 08 APR 2009,29 APR 2009,25 MAY 2
  15. DOXORUBICIN [Concomitant]
     Active Substance: DOXORUBICIN
     Indication: B-cell small lymphocytic lymphoma
  16. VINCRISTINE [Concomitant]
     Active Substance: VINCRISTINE
     Indication: Non-Hodgkin^s lymphoma
     Dosage: CHOP,ON 13 JAN 2009,02 FEB 2009,25 FEB 2009,17 MAR 2009, R-CHOP, ON 08 APR 2009,29 APR 2009,25 MAY 2
  17. VINCRISTINE [Concomitant]
     Active Substance: VINCRISTINE
     Indication: B-cell small lymphocytic lymphoma
  18. PREDNISONE [Concomitant]
     Active Substance: PREDNISONE
     Indication: Non-Hodgkin^s lymphoma
     Dosage: CHOP,ON 13 JAN 2009,02 FEB 2009,25 FEB 2009,17 MAR 2009, R-CHOP, ON 08 APR 2009,29 APR 2009,25 MAY 2
  19. PREDNISONE [Concomitant]
     Active Substance: PREDNISONE
     Indication: B-cell small lymphocytic lymphoma
  20. OXALIPLATIN [Concomitant]
     Active Substance: OXALIPLATIN
     Indication: Colon cancer
     Dosage: XELOX
     Dates: start: 20110527
  21. OXALIPLATIN [Concomitant]
     Active Substance: OXALIPLATIN
     Indication: Adenocarcinoma
     Dosage: XELOX, DAY1,Q3W
     Dates: start: 20110617
  22. BENDAMUSTINE [Concomitant]
     Active Substance: BENDAMUSTINE
     Indication: Non-Hodgkin^s lymphoma
     Dosage: DAY1 TO DAY2,BR, 125MG D1, 100MG D2,BR,ON 23 MAR 2020,22 APR 2020,20 MAY 2020,17 JUN?2020,Q4W
     Dates: start: 20180403
  23. BENDAMUSTINE [Concomitant]
     Active Substance: BENDAMUSTINE
     Indication: B-cell small lymphocytic lymphoma
  24. CHLORAMBUCIL [Concomitant]
     Active Substance: CHLORAMBUCIL
     Indication: Non-Hodgkin^s lymphoma
     Dosage: RITUXIMAB + CHLORAMBUCIL TABLETS,ON 24 APR 2018,18 MAY 2018,12 JUN 2018
     Route: 048
  25. CHLORAMBUCIL [Concomitant]
     Active Substance: CHLORAMBUCIL
     Indication: B-cell small lymphocytic lymphoma
  26. LENALIDOMIDE [Concomitant]
     Active Substance: LENALIDOMIDE
     Indication: Non-Hodgkin^s lymphoma
     Dosage: DAY1 TO DAY22,R2,ON 24 OCT 2019,26 NOV 2019,26 DEC 2019,07 FEB 2020,Q4W
  27. LENALIDOMIDE [Concomitant]
     Active Substance: LENALIDOMIDE
     Indication: B-cell small lymphocytic lymphoma

REACTIONS (3)
  - B-cell small lymphocytic lymphoma recurrent [Unknown]
  - Non-Hodgkin^s lymphoma recurrent [Unknown]
  - Off label use [Unknown]
